FAERS Safety Report 6268519-9 (Version None)
Quarter: 2009Q3

REPORT INFORMATION
  Report Type: 
  Country: None (occurrence: None)
  Receive Date: 20090708
  Receipt Date: 20080916
  Transmission Date: 20100115
  Serious: Yes (Hospitalization)
  Sender: FDA-Public Use
  Company Number: 2008S1000557

PATIENT
  Age: 29 Year
  Sex: Female
  Weight: 56 kg

DRUGS (10)
  1. AZATHIOPRINE [Suspect]
     Dosage: TID
     Dates: start: 20030601
  2. KINERET [Suspect]
     Indication: RHEUMATOID ARTHRITIS
     Dosage: 100 MG;QD;SC
     Route: 058
     Dates: start: 20031201
  3. PREDNISOLONE [Concomitant]
  4. AZELASTINE HCL [Concomitant]
  5. LEVOCETIRIZINE DIHYDROCHLORIDE [Concomitant]
  6. GABAPENTIN [Concomitant]
  7. PANTOPRAZOLE SODIUM [Concomitant]
  8. METHOTREXATE [Concomitant]
  9. ADALIMUMAB [Concomitant]
  10. ETANERCEPT [Concomitant]

REACTIONS (1)
  - URINARY TRACT INFECTION BACTERIAL [None]
